FAERS Safety Report 5282974-2 (Version None)
Quarter: 2007Q1

REPORT INFORMATION
  Report Type: 
  Country: None (occurrence: None)
  Receive Date: 20070328
  Receipt Date: 20070328
  Transmission Date: 20070707
  Serious: Yes (Other)
  Sender: FDA-Public Use
  Company Number: None

PATIENT
  Age: 57 Year
  Sex: Male
  Weight: 99.8 kg

DRUGS (8)
  1. BACLOFEN [Suspect]
  2. ASPIRIN [Concomitant]
  3. LISINOPRIL AND HYDROCHLOROTHIAZIDE [Concomitant]
  4. SULINDAC [Concomitant]
  5. VARDENAFIL HCL [Concomitant]
  6. GLYBURIDE AND METFORMIN HCL [Concomitant]
  7. PRAZOSIN HCL [Concomitant]
  8. BUPROPION HCL [Concomitant]

REACTIONS (1)
  - RASH [None]
